FAERS Safety Report 14103462 (Version 11)
Quarter: 2019Q4

REPORT INFORMATION
  Report Type: Spontaneous
  Country: KR (occurrence: KR)
  Receive Date: 20171018
  Receipt Date: 20191217
  Transmission Date: 20200122
  Serious: Yes (Hospitalization, Other)
  Sender: FDA-Public Use
  Company Number: KR-009507513-1710KOR000026

PATIENT
  Age: 66 Year
  Sex: Male

DRUGS (12)
  1. CYTARABINE. [Concomitant]
     Active Substance: CYTARABINE
     Indication: ACUTE PROMYELOCYTIC LEUKAEMIA
     Dosage: 34.8 MG, ONCE DAILY
     Route: 042
     Dates: start: 20170921, end: 20170922
  2. TAZOLACTAM [Concomitant]
     Indication: INFECTION
     Dosage: 1 VIAL, FOUR TIMES A DAY
     Route: 042
     Dates: start: 20170921, end: 20170924
  3. VESANOID [Concomitant]
     Active Substance: TRETINOIN
     Indication: ACUTE PROMYELOCYTIC LEUKAEMIA
     Dosage: 4 CAP (10 MG), TWICE A DAY
     Route: 048
     Dates: start: 20170921, end: 20171030
  4. DEXAMETHASONE SODIUM PHOSPHATE. [Concomitant]
     Active Substance: DEXAMETHASONE SODIUM PHOSPHATE
     Indication: ACUTE PROMYELOCYTIC LEUKAEMIA
     Dosage: 1 AMPLE, TWICE DAILY
     Route: 042
     Dates: start: 20170921, end: 20170922
  5. HYDRINE [Concomitant]
     Dosage: 3 CAPSULES (500 MG), TWICE A DAY
     Route: 048
     Dates: start: 20170922, end: 20170922
  6. TRANEXAMIC ACID. [Concomitant]
     Active Substance: TRANEXAMIC ACID
     Indication: ACUTE PROMYELOCYTIC LEUKAEMIA
     Dosage: STRENGTH: 500MG/5ML; 4 AMPLE, QD
     Route: 042
     Dates: start: 20170921
  7. NOXAFIL [Suspect]
     Active Substance: POSACONAZOLE
     Dosage: 300 MG, ONCE A DAY
     Route: 048
     Dates: start: 20170923, end: 20171006
  8. ALLOPURINOL. [Concomitant]
     Active Substance: ALLOPURINOL
     Indication: PROPHYLAXIS
     Dosage: 1 TABLET (100MG) THREE TIMES DAY
     Route: 048
     Dates: start: 20170921
  9. CRAVIT [Concomitant]
     Active Substance: LEVOFLOXACIN
     Indication: PROPHYLAXIS
     Dosage: STRENGTH: 750MG/150ML; 1 VIAL, ONCE DAILY
     Route: 042
     Dates: start: 20170921
  10. NASEA [Concomitant]
     Active Substance: RAMOSETRON HYDROCHLORIDE
     Indication: PROPHYLAXIS OF NAUSEA AND VOMITING
     Dosage: 1 DOSAGE FORM
     Route: 042
     Dates: start: 20170922
  11. NOXAFIL [Suspect]
     Active Substance: POSACONAZOLE
     Indication: ANTIFUNGAL PROPHYLAXIS
     Dosage: 300 MG, TWICE A DAY
     Route: 048
     Dates: start: 20170922, end: 20170922
  12. HYDRINE [Concomitant]
     Indication: ACUTE PROMYELOCYTIC LEUKAEMIA
     Dosage: 2 CAPSULES (500 MG), ONCE DAILY
     Route: 048
     Dates: start: 20170921, end: 20170921

REACTIONS (9)
  - Atrial fibrillation [Recovered/Resolved]
  - Pyrexia [Recovered/Resolved]
  - Chest discomfort [Recovered/Resolved]
  - Dyspnoea [Recovered/Resolved]
  - Disseminated intravascular coagulation [Recovered/Resolved]
  - Hydrocholecystis [Unknown]
  - Diarrhoea [Recovered/Resolved]
  - Ileus [Recovered/Resolved]
  - Abdominal pain [Recovered/Resolved]

NARRATIVE: CASE EVENT DATE: 201709
